FAERS Safety Report 7001686-8 (Version None)
Quarter: 2010Q3

REPORT INFORMATION
  Report Type: 
  Country: None (occurrence: None)
  Receive Date: 20100920
  Receipt Date: 20100910
  Transmission Date: 20110219
  Serious: Yes (Other)
  Sender: FDA-Public Use
  Company Number: US-PFIZER INC-2010115571

PATIENT
  Sex: Male
  Weight: 74.83 kg

DRUGS (6)
  1. CHANTIX [Suspect]
     Indication: SMOKING CESSATION THERAPY
     Dosage: 0.5 MG, 1X/DAY
     Dates: start: 20100801
  2. CHANTIX [Suspect]
     Dosage: 1 MG, 2X/DAY
     Route: 048
     Dates: start: 20100801, end: 20100801
  3. VIREAD [Concomitant]
     Indication: HIV INFECTION
     Dosage: UNK
  4. COMBIVIR [Concomitant]
     Indication: HIV INFECTION
     Dosage: UNK
  5. NORVIR [Concomitant]
     Indication: HIV INFECTION
     Dosage: UNK
  6. REYATAZ [Concomitant]
     Indication: HIV INFECTION
     Dosage: UNK

REACTIONS (2)
  - CANDIDIASIS [None]
  - INSOMNIA [None]
